FAERS Safety Report 19765940 (Version 1)
Quarter: 2021Q3

REPORT INFORMATION
  Report Type: Spontaneous
  Country: US (occurrence: US)
  Receive Date: 20210830
  Receipt Date: 20210830
  Transmission Date: 20211014
  Serious: No
  Sender: FDA-Public Use
  Company Number: US-ANIPHARMA-2021-US-001970

PATIENT
  Sex: 0

DRUGS (3)
  1. ANASTROZOLE. [Suspect]
     Active Substance: ANASTROZOLE
     Indication: PRODUCT USED FOR UNKNOWN INDICATION
     Route: 065
  2. EXEMESTANE. [Suspect]
     Active Substance: EXEMESTANE
     Dosage: DAILY
     Route: 065
     Dates: start: 20210115
  3. IBRANCE [Suspect]
     Active Substance: PALBOCICLIB
     Dosage: 100MG DAILY ORALLY FOR 21 DAYS AND OFF 7 DAY
     Route: 048
     Dates: start: 20201008

REACTIONS (2)
  - Arthralgia [Unknown]
  - Migraine [Recovering/Resolving]
